FAERS Safety Report 7008066-X (Version None)
Quarter: 2010Q3

REPORT INFORMATION
  Report Type: 
  Country: None (occurrence: None)
  Receive Date: 20100922
  Receipt Date: 20091217
  Transmission Date: 20110219
  Serious: Yes (Death, Hospitalization)
  Sender: FDA-Public Use
  Company Number: US-BRISTOL-MYERS SQUIBB COMPANY-14900625

PATIENT
  Age: 76 Year
  Sex: Male
  Weight: 71 kg

DRUGS (4)
  1. ERBITUX [Suspect]
     Indication: OESOPHAGEAL ADENOCARCINOMA
     Dosage: 400MG/M2 ON DAY1;,1250MG/M2 ON DAYS 8,15,22,29 AND 36;TOTAL DOSE ADMINISTERED FOR THIS COURSE 3038MG
     Dates: start: 20090922, end: 20091027
  2. CISPLATIN [Suspect]
     Indication: OESOPHAGEAL ADENOCARCINOMA
     Dosage: 25MG/M2 ON DAY 1,8,15,22,29,36.TOTAL DOSE FOR THIS COURS 212MG 3RD DOSE HELD AND LAST DOSE REDUCED
     Dates: start: 20090922, end: 20091027
  3. TAXOL [Suspect]
     Indication: OESOPHAGEAL ADENOCARCINOMA
     Dosage: 50MG/M2 ON D 1,8,15,22,29,36.TOTAL DOSE FOR THIS COURSE 426MG 3RD DOSE HELD AND LAST DOSE REDUCED
     Dates: start: 20090922, end: 20091027
  4. RADIATION THERAPY [Suspect]
     Indication: OESOPHAGEAL ADENOCARCINOMA
     Dosage: 1DF = 5040 CGY.TOTAL DOSE ADMINISTERED TILL 30-OCT-09 5040 CGY.
     Dates: start: 20090922, end: 20091030

REACTIONS (8)
  - ANAEMIA [None]
  - DEATH [None]
  - DEHYDRATION [None]
  - FEBRILE NEUTROPENIA [None]
  - OESOPHAGEAL HAEMORRHAGE [None]
  - OESOPHAGEAL PAIN [None]
  - STOMATITIS [None]
  - VOMITING [None]
